FAERS Safety Report 5699721-2 (Version None)
Quarter: 2008Q2

REPORT INFORMATION
  Report Type: 
  Country: None (occurrence: None)
  Receive Date: 20080410
  Receipt Date: 20080402
  Transmission Date: 20081010
  Serious: Yes (Other)
  Sender: FDA-Public Use
  Company Number: PHEH2008US03438

PATIENT
  Sex: Female

DRUGS (2)
  1. ZOMETA [Suspect]
     Dosage: 4 MG MONTHLY FOR 2 YEARS
  2. AREDIA [Suspect]

REACTIONS (3)
  - ARTHRITIS [None]
  - FRACTURE [None]
  - OSTEONECROSIS [None]
